FAERS Safety Report 23754209 (Version 6)
Quarter: 2025Q2

REPORT INFORMATION
  Report Type: Report from Study
  Country: MX (occurrence: MX)
  Receive Date: 20240417
  Receipt Date: 20250404
  Transmission Date: 20250716
  Serious: Yes (Other)
  Sender: TAKEDA
  Company Number: MX-TAKEDA-MX201932495

PATIENT
  Age: 11 Year
  Sex: Male
  Weight: 51.4 kg

DRUGS (10)
  1. IDURSULFASE [Suspect]
     Active Substance: IDURSULFASE
     Indication: Mucopolysaccharidosis II
     Dosage: 5 DOSAGE FORM, 1/WEEK
     Dates: start: 20140913
  2. IDURSULFASE [Suspect]
     Active Substance: IDURSULFASE
     Dosage: 4 DOSAGE FORM, 1/WEEK
     Dates: start: 201610
  3. IDURSULFASE [Suspect]
     Active Substance: IDURSULFASE
     Dosage: 17.5 MILLIGRAM, 1/WEEK
     Dates: start: 20180712
  4. IDURSULFASE [Suspect]
     Active Substance: IDURSULFASE
     Dosage: 4 DOSAGE FORM, 1/WEEK
     Dates: start: 20190913
  5. IDURSULFASE [Suspect]
     Active Substance: IDURSULFASE
  6. IDURSULFASE [Suspect]
     Active Substance: IDURSULFASE
     Dosage: 4 DOSAGE FORM, 1/WEEK
     Dates: start: 20191229
  7. IDURSULFASE [Suspect]
     Active Substance: IDURSULFASE
     Dosage: 17.5 MILLIGRAM, 1/WEEK
  8. IDURSULFASE [Suspect]
     Active Substance: IDURSULFASE
     Dosage: UNK UNK, 1/WEEK
  9. HYDROCORTISONE [Concomitant]
     Active Substance: HYDROCORTISONE
     Indication: Premedication
  10. SPIRONOLACTONE [Concomitant]
     Active Substance: SPIRONOLACTONE
     Dosage: 25 MILLIGRAM, BID

REACTIONS (9)
  - Colloid brain cyst [Recovered/Resolved]
  - Chest pain [Recovered/Resolved]
  - Blood pressure increased [Unknown]
  - Anxiety [Unknown]
  - Malaise [Unknown]
  - Myalgia [Recovered/Resolved]
  - Product availability issue [Recovered/Resolved]
  - Product dose omission issue [Not Recovered/Not Resolved]
  - Incorrect dose administered [Recovered/Resolved]

NARRATIVE: CASE EVENT DATE: 20190913
